FAERS Safety Report 8444773-X (Version None)
Quarter: 2012Q2

REPORT INFORMATION
  Report Type: 
  Country: None (occurrence: None)
  Receive Date: 20120323
  Receipt Date: 20110818
  Transmission Date: 20120825
  Serious: Yes (Other)
  Sender: FDA-Public Use
  Company Number: 163-21880-11082302

PATIENT
  Age: 63 Year
  Sex: Male

DRUGS (10)
  1. LENALIDOMIDE [Suspect]
     Indication: MULTIPLE MYELOMA
     Dosage: SEE IMAGE
     Route: 048
     Dates: start: 20100501, end: 20100601
  2. LENALIDOMIDE [Suspect]
     Indication: MULTIPLE MYELOMA
     Dosage: SEE IMAGE
     Route: 048
     Dates: start: 20110601, end: 20110721
  3. LENALIDOMIDE [Suspect]
     Indication: MULTIPLE MYELOMA
     Dosage: SEE IMAGE
     Route: 048
     Dates: start: 20091201, end: 20100401
  4. LENALIDOMIDE [Suspect]
     Indication: MULTIPLE MYELOMA
     Dosage: SEE IMAGE
     Route: 048
     Dates: start: 20100901, end: 20110601
  5. LENALIDOMIDE [Suspect]
     Indication: MULTIPLE MYELOMA
     Dosage: SEE IMAGE
     Route: 048
     Dates: start: 20100801, end: 20100801
  6. ATENOLOL [Concomitant]
  7. FLUTICASONE PROPIONATE [Concomitant]
  8. DEXAMETHASONE [Concomitant]
  9. AMLODIPINE [Concomitant]
  10. FAMOTIDINE [Concomitant]

REACTIONS (3)
  - PULMONARY EMBOLISM [None]
  - PROTEIN TOTAL INCREASED [None]
  - PANCYTOPENIA [None]
